FAERS Safety Report 19361886 (Version 1)
Quarter: 2021Q2

REPORT INFORMATION
  Report Type: Spontaneous
  Country: US (occurrence: US)
  Receive Date: 20210603
  Receipt Date: 20210603
  Transmission Date: 20210717
  Serious: No
  Sender: FDA-Public Use
  Company Number: US-UNICHEM PHARMACEUTICALS (USA) INC-UCM202104-000343

PATIENT
  Sex: Female

DRUGS (1)
  1. ATENOLOL TABLETS USP [Suspect]
     Active Substance: ATENOLOL
     Indication: PAIN
     Dates: start: 20210125

REACTIONS (3)
  - Heart rate decreased [Recovered/Resolved]
  - Product use in unapproved indication [Unknown]
  - Dyspnoea exertional [Unknown]

NARRATIVE: CASE EVENT DATE: 20210304
